FAERS Safety Report 13939703 (Version 1)
Quarter: 2017Q3

REPORT INFORMATION
  Report Type: Spontaneous
  Country: US (occurrence: US)
  Receive Date: 20170906
  Receipt Date: 20170906
  Transmission Date: 20171127
  Serious: Yes (Hospitalization)
  Sender: FDA-Public Use
  Company Number: None

PATIENT
  Age: 75 Year
  Sex: Male
  Weight: 78.1 kg

DRUGS (1)
  1. FINASTERIDE. [Suspect]
     Active Substance: FINASTERIDE
     Indication: BENIGN PROSTATIC HYPERPLASIA
     Dates: start: 20170901, end: 20170902

REACTIONS (4)
  - Asthenia [None]
  - Confusional state [None]
  - Blood pressure decreased [None]
  - Cognitive disorder [None]

NARRATIVE: CASE EVENT DATE: 20170901
